FAERS Safety Report 5878000-4 (Version None)
Quarter: 2008Q3

REPORT INFORMATION
  Report Type: 
  Country: None (occurrence: None)
  Receive Date: 20080909
  Receipt Date: 20080909
  Transmission Date: 20090109
  Serious: Yes (Hospitalization, Other)
  Sender: FDA-Public Use
  Company Number: None

PATIENT
  Sex: Male
  Weight: 117.9352 kg

DRUGS (1)
  1. FLOMAX [Suspect]
     Indication: PROSTATOMEGALY
     Dosage: 1 CAPSULE DAILY PO
     Route: 048
     Dates: start: 20070511, end: 20070511

REACTIONS (6)
  - DEFORMITY [None]
  - DYSURIA [None]
  - ERECTION INCREASED [None]
  - IMPAIRED HEALING [None]
  - MALE SEXUAL DYSFUNCTION [None]
  - PENIS DISORDER [None]
